FAERS Safety Report 7906146-5 (Version None)
Quarter: 2011Q4

REPORT INFORMATION
  Report Type: 
  Country: None (occurrence: None)
  Receive Date: 20111027
  Receipt Date: 20110905
  Transmission Date: 20120403
  Serious: Yes (Other)
  Sender: FDA-Public Use
  Company Number: 2010-4374

PATIENT
  Age: 12 Year
  Sex: Male

DRUGS (1)
  1. INCRELEX [Suspect]
     Indication: INSULIN-LIKE GROWTH FACTOR DECREASED
     Dosage: (2 IN 1 D), SUBCUTANEOUS
     Route: 058
     Dates: start: 20050101, end: 20091202

REACTIONS (6)
  - BACTERIAL TEST POSITIVE [None]
  - PYREXIA [None]
  - BENIGN INTRACRANIAL HYPERTENSION [None]
  - POST PROCEDURAL COMPLICATION [None]
  - CSF WHITE BLOOD CELL COUNT POSITIVE [None]
  - TREATMENT NONCOMPLIANCE [None]
